FAERS Safety Report 7361733-0 (Version None)
Quarter: 2011Q1

REPORT INFORMATION
  Report Type: 
  Country: None (occurrence: None)
  Receive Date: 20110318
  Receipt Date: 20110311
  Transmission Date: 20110831
  Serious: Yes (Disabling)
  Sender: FDA-Public Use
  Company Number: US-MERCK-1102USA01503

PATIENT
  Age: 7 Year
  Sex: Female
  Weight: 22 kg

DRUGS (4)
  1. SINGULAIR [Suspect]
     Indication: ASTHMA
     Route: 048
     Dates: start: 20101025, end: 20101225
  2. PATANASE [Concomitant]
     Indication: RHINITIS ALLERGIC
     Route: 055
  3. NASONEX [Concomitant]
     Indication: RHINITIS ALLERGIC
     Route: 055
     Dates: start: 20091001
  4. FLOVENT [Concomitant]
     Indication: ASTHMA
     Route: 048
     Dates: start: 20091201

REACTIONS (7)
  - ABDOMINAL PAIN [None]
  - HYPOAESTHESIA [None]
  - BRONCHIECTASIS [None]
  - WEIGHT DECREASED [None]
  - EOSINOPHILIA [None]
  - VOMITING [None]
  - EAR INFECTION [None]
